FAERS Safety Report 17012041 (Version 1)
Quarter: 2019Q4

REPORT INFORMATION
  Report Type: Spontaneous
  Country: BR (occurrence: BR)
  Receive Date: 20191108
  Receipt Date: 20191108
  Transmission Date: 20200122
  Serious: Yes (Other)
  Sender: FDA-Public Use
  Company Number: BR-CELGENEUS-BRA-20191101108

PATIENT
  Sex: Female
  Weight: 72 kg

DRUGS (2)
  1. VIDAZA [Suspect]
     Active Substance: AZACITIDINE
     Indication: MYELODYSPLASTIC SYNDROME
     Dosage: 135 MILLIGRAM
     Route: 058
     Dates: start: 20190812
  2. VIDAZA [Suspect]
     Active Substance: AZACITIDINE
     Indication: OFF LABEL USE

REACTIONS (2)
  - Chronic myeloid leukaemia [Not Recovered/Not Resolved]
  - Bone marrow failure [Not Recovered/Not Resolved]

NARRATIVE: CASE EVENT DATE: 2019
